FAERS Safety Report 7351849-7 (Version None)
Quarter: 2011Q1

REPORT INFORMATION
  Report Type: 
  Country: None (occurrence: None)
  Receive Date: 20110315
  Receipt Date: 20110210
  Transmission Date: 20110831
  Serious: Yes (Other)
  Sender: FDA-Public Use
  Company Number: US-BAYER-201031307NA

PATIENT
  Sex: Female
  Weight: 57.143 kg

DRUGS (7)
  1. YAZ [Suspect]
     Indication: PRODUCT USED FOR UNKNOWN INDICATION
     Route: 048
  2. VALIUM [Concomitant]
     Dosage: 10 MG, UNK
     Route: 048
     Dates: start: 20040317
  3. KEFZOL [Concomitant]
     Dosage: 1 G, UNK
     Route: 042
     Dates: start: 20040317
  4. MOTRIN [Concomitant]
     Dosage: UNK, PRN
     Route: 048
     Dates: start: 20040317
  5. REGLAN [Concomitant]
     Dosage: 10 MG, UNK
     Route: 048
     Dates: start: 20040317
  6. YASMIN [Suspect]
     Indication: PRODUCT USED FOR UNKNOWN INDICATION
     Route: 048
  7. PEPCID [Concomitant]
     Dosage: 20 MG, UNK
     Route: 048
     Dates: start: 20040317

REACTIONS (4)
  - CHOLECYSTITIS CHRONIC [None]
  - BILIARY COLIC [None]
  - INJURY [None]
  - CHOLELITHIASIS [None]
